FAERS Safety Report 13617865 (Version 1)
Quarter: 2017Q2

REPORT INFORMATION
  Report Type: Spontaneous
  Country: AR (occurrence: AR)
  Receive Date: 20170606
  Receipt Date: 20170606
  Transmission Date: 20170830
  Serious: Yes (Other)
  Sender: FDA-Public Use
  Company Number: AR-PFIZER INC-2017226614

PATIENT
  Age: 81 Year
  Sex: Male

DRUGS (5)
  1. PREDNISOLONE. [Interacting]
     Active Substance: PREDNISOLONE
     Route: 065
  2. ELIQUIS [Interacting]
     Active Substance: APIXABAN
     Indication: CEREBROVASCULAR ACCIDENT PROPHYLAXIS
     Dosage: 2.5 MG, BID
  3. ELIQUIS [Interacting]
     Active Substance: APIXABAN
     Dosage: 0.5 MG, UNK
  4. IBUPIRAC /00109201/ [Interacting]
     Active Substance: IBUPROFEN
     Route: 065
  5. METHOTREXATE SODIUM. [Suspect]
     Active Substance: METHOTREXATE SODIUM
     Route: 065

REACTIONS (3)
  - Spinal operation [Unknown]
  - Off label use [Unknown]
  - Drug interaction [Unknown]
